FAERS Safety Report 7522285-5 (Version None)
Quarter: 2011Q2

REPORT INFORMATION
  Report Type: 
  Country: None (occurrence: None)
  Receive Date: 20110603
  Receipt Date: 20110527
  Transmission Date: 20111010
  Serious: Yes (Other)
  Sender: FDA-Public Use
  Company Number: US-PFIZER INC-2009281365

PATIENT
  Sex: Male
  Weight: 68 kg

DRUGS (8)
  1. PREDNISONE [Concomitant]
     Indication: KERATITIS
  2. ACETAMINOPHEN AND OXYCODONE HCL [Concomitant]
     Indication: EYE PAIN
     Dosage: UNK
     Dates: start: 20091022
  3. VITAMIN D [Concomitant]
  4. PREDNISONE [Concomitant]
     Indication: HERPES ZOSTER
     Dosage: UNK
     Route: 047
     Dates: start: 20091103
  5. SUTENT [Suspect]
     Indication: THYROID CANCER
     Dosage: 50 MG, 1X/DAY, 4 WEEKS ON AND 2 WEEKS OFF
     Dates: start: 20090611
  6. SUTENT [Suspect]
     Dosage: 37.5 MG, 1X/DAY
  7. NEXIUM [Concomitant]
     Dosage: 40 MG, 1X/DAY
  8. SYNTHROID [Concomitant]
     Indication: THYROID DISORDER
     Dates: start: 20000101

REACTIONS (3)
  - HERPES ZOSTER OPHTHALMIC [None]
  - IMMUNOSUPPRESSION [None]
  - PALMAR-PLANTAR ERYTHRODYSAESTHESIA SYNDROME [None]
